FAERS Safety Report 13721203 (Version 1)
Quarter: 2017Q3

REPORT INFORMATION
  Report Type: Spontaneous
  Country: US (occurrence: US)
  Receive Date: 20170705
  Receipt Date: 20170705
  Transmission Date: 20171127
  Serious: Yes (Life-Threatening, Hospitalization, Disabling)
  Sender: FDA-Public Use
  Company Number: None

PATIENT
  Age: 40 Year
  Sex: Female

DRUGS (2)
  1. CYMBALTA [Suspect]
     Active Substance: DULOXETINE HYDROCHLORIDE
     Indication: PAIN
     Dosage: ?          OTHER STRENGTH:MG;QUANTITY:60 CAPSULE(S);?
     Route: 048
  2. CYMBALTA [Suspect]
     Active Substance: DULOXETINE HYDROCHLORIDE
     Indication: NEUROPATHY PERIPHERAL
     Dosage: ?          OTHER STRENGTH:MG;QUANTITY:60 CAPSULE(S);?
     Route: 048

REACTIONS (23)
  - Pruritus [None]
  - Malnutrition [None]
  - Hypoaesthesia [None]
  - Heart rate increased [None]
  - Hyperhidrosis [None]
  - Drug monitoring procedure not performed [None]
  - Tooth disorder [None]
  - Urinary retention [None]
  - Blood cholesterol increased [None]
  - Candida infection [None]
  - Insomnia [None]
  - Osteomalacia [None]
  - Mood altered [None]
  - Feeding disorder [None]
  - Nausea [None]
  - Chills [None]
  - Therapy cessation [None]
  - Asthenia [None]
  - Muscle spasms [None]
  - Pain [None]
  - Menorrhagia [None]
  - Agitation [None]
  - Tinnitus [None]

NARRATIVE: CASE EVENT DATE: 20151019
